FAERS Safety Report 4776690-0 (Version None)
Quarter: 2005Q3

REPORT INFORMATION
  Report Type: 
  Country: None (occurrence: None)
  Receive Date: 20050923
  Receipt Date: 20050912
  Transmission Date: 20060218
  Serious: Yes (Death)
  Sender: FDA-Public Use
  Company Number: US-JNJFOC-20040303172

PATIENT
  Sex: Female

DRUGS (25)
  1. INFLIXIMAB [Suspect]
     Indication: RHEUMATOID ARTHRITIS
     Route: 042
  2. METHOTREXATE [Concomitant]
  3. PRILOSEC [Concomitant]
  4. BEXTRA [Concomitant]
  5. PREDNISONE [Concomitant]
  6. LEVOXYL [Concomitant]
  7. LISINOPRIL [Concomitant]
  8. ACTONEL [Concomitant]
  9. TRIAMTERENE AND HYDROCHLOROTHIAZIDE [Concomitant]
  10. TRIAMTERENE AND HYDROCHLOROTHIAZIDE [Concomitant]
     Dosage: 37.5/25  MG
  11. AMITRIPTYLINE HCL [Concomitant]
  12. CALCIUM GLUCONATE [Concomitant]
  13. FOLIC ACID [Concomitant]
  14. GLUCOSAMINE/CHONDROITIN [Concomitant]
  15. GLUCOSAMINE/CHONDROITIN [Concomitant]
  16. GLUCOSAMINE/CHONDROITIN [Concomitant]
  17. GLUCOSAMINE/CHONDROITIN [Concomitant]
     Dosage: 500/400 MG
  18. MULTI-VITAMIN [Concomitant]
  19. MULTI-VITAMIN [Concomitant]
  20. MULTI-VITAMIN [Concomitant]
  21. MULTI-VITAMIN [Concomitant]
  22. MULTI-VITAMIN [Concomitant]
  23. MULTI-VITAMIN [Concomitant]
  24. MULTI-VITAMIN [Concomitant]
  25. MULTI-VITAMIN [Concomitant]

REACTIONS (1)
  - ACUTE LEUKAEMIA [None]
